FAERS Safety Report 4995335-8 (Version None)
Quarter: 2006Q2

REPORT INFORMATION
  Report Type: 
  Country: None (occurrence: None)
  Receive Date: 20060503
  Receipt Date: 20060424
  Transmission Date: 20061013
  Serious: Yes (Hospitalization)
  Sender: FDA-Public Use
  Company Number: 2006-00953

PATIENT
  Age: 57 Year
  Sex: Male

DRUGS (11)
  1. VELCADE [Suspect]
     Indication: MULTIPLE MYELOMA
     Dosage: 1.00 MG/M2, INTRAVENOUS
     Route: 042
     Dates: start: 20060314, end: 20060407
  2. REVLIMID [Suspect]
     Indication: MULTIPLE MYELOMA
     Dosage: 15.00 MG, ORAL
     Route: 048
     Dates: start: 20060314, end: 20060417
  3. MORPHINE [Concomitant]
  4. REGLAN [Concomitant]
  5. XANAX [Concomitant]
  6. PRILOSEC [Concomitant]
  7. POTASSIUM (POTASSIUM) [Concomitant]
  8. MAGNESIUM (MAGNESIUM) [Concomitant]
  9. VITAMIN E [Concomitant]
  10. MULTIVITAMINS (ERGOCALCIFEROL, ASCORBIC ACID, PANTHENOL, NICOTINAMIDE, [Concomitant]
  11. KYTRIL [Concomitant]

REACTIONS (5)
  - ARTHRALGIA [None]
  - HAEMOGLOBIN DECREASED [None]
  - JOINT SWELLING [None]
  - PLATELET COUNT DECREASED [None]
  - WHITE BLOOD CELL COUNT DECREASED [None]
